FAERS Safety Report 6525641-7 (Version None)
Quarter: 2009Q4

REPORT INFORMATION
  Report Type: 
  Country: None (occurrence: None)
  Receive Date: 20091214
  Receipt Date: 20090129
  Transmission Date: 20100525
  Serious: Yes (Other)
  Sender: FDA-Public Use
  Company Number: 611416

PATIENT
  Age: 54 Year
  Sex: Male
  Weight: 76.7 kg

DRUGS (2)
  1. PEGASYS [Suspect]
     Indication: HEPATITIS C
     Dosage: 180 UG 1 PER WEEK SUBCUTANEOUS
     Route: 058
     Dates: start: 20080516, end: 20081223
  2. COPEGUS [Suspect]
     Indication: HEPATITIS C
     Dosage: 400 MG 2 PER DAY ORAL
     Route: 048
     Dates: start: 20080516, end: 20081223

REACTIONS (6)
  - ERYTHEMA MULTIFORME [None]
  - NEUTROPHIL COUNT ABNORMAL [None]
  - PAIN IN EXTREMITY [None]
  - RASH [None]
  - T-LYMPHOCYTE COUNT DECREASED [None]
  - WHITE BLOOD CELL COUNT DECREASED [None]
